FAERS Safety Report 13275157 (Version 1)
Quarter: 2017Q1

REPORT INFORMATION
  Report Type: Spontaneous
  Country: US (occurrence: US)
  Receive Date: 20170227
  Receipt Date: 20170227
  Transmission Date: 20170428
  Serious: Yes (Other)
  Sender: FDA-Public Use
  Company Number: US-ELI_LILLY_AND_COMPANY-US201608002241

PATIENT
  Sex: Male

DRUGS (5)
  1. CYMBALTA [Suspect]
     Active Substance: DULOXETINE HYDROCHLORIDE
     Indication: MAJOR DEPRESSION
     Dosage: 30 MG, UNKNOWN
     Route: 065
     Dates: start: 20100428
  2. CYMBALTA [Suspect]
     Active Substance: DULOXETINE HYDROCHLORIDE
     Dosage: 20 MG, UNKNOWN
     Route: 065
     Dates: start: 20120928
  3. CYMBALTA [Suspect]
     Active Substance: DULOXETINE HYDROCHLORIDE
     Dosage: 60 MG, UNKNOWN
     Route: 065
     Dates: start: 20120628
  4. CYMBALTA [Suspect]
     Active Substance: DULOXETINE HYDROCHLORIDE
     Dosage: 30 MG, UNKNOWN
  5. CYMBALTA [Suspect]
     Active Substance: DULOXETINE HYDROCHLORIDE
     Dosage: 30 MG, UNKNOWN
     Route: 065

REACTIONS (18)
  - Dysphoria [Unknown]
  - Sensory disturbance [Unknown]
  - Irritability [Unknown]
  - Paraesthesia [Unknown]
  - Suicide attempt [Unknown]
  - Drug withdrawal syndrome [Unknown]
  - Hyperhidrosis [Unknown]
  - Anxiety [Unknown]
  - Restlessness [Unknown]
  - Fatigue [Unknown]
  - Suicidal ideation [Unknown]
  - Agitation [Unknown]
  - Confusional state [Unknown]
  - Affect lability [Unknown]
  - Headache [Unknown]
  - Nausea [Unknown]
  - Tremor [Unknown]
  - Insomnia [Unknown]
